FAERS Safety Report 7204296-2 (Version None)
Quarter: 2010Q4

REPORT INFORMATION
  Report Type: 
  Country: None (occurrence: None)
  Receive Date: 20101230
  Receipt Date: 20101221
  Transmission Date: 20110411
  Serious: Yes (Hospitalization, Disabling)
  Sender: FDA-Public Use
  Company Number: GR-ROCHE-749668

PATIENT
  Age: 80 Year
  Sex: Female
  Weight: 70 kg

DRUGS (8)
  1. BONIVA [Suspect]
     Indication: OSTEOPOROSIS
     Route: 048
     Dates: start: 20070701, end: 20100601
  2. METHOTREXATE [Concomitant]
     Indication: RHEUMATOID ARTHRITIS
     Route: 048
     Dates: start: 20091201, end: 20100901
  3. MEDROL [Concomitant]
     Indication: RHEUMATOID ARTHRITIS
     Route: 048
     Dates: start: 20091201, end: 20100601
  4. LIPITOR [Concomitant]
     Route: 048
     Dates: start: 20070101
  5. PROTHIUCIL [Concomitant]
     Indication: HYPERTHYROIDISM
     Route: 048
     Dates: start: 20070101
  6. CALCIORAL D3 [Concomitant]
     Indication: OSTEOPOROSIS
     Route: 048
     Dates: start: 20070701
  7. MIRAPEXIN [Concomitant]
     Route: 048
  8. PRADAXA [Concomitant]
     Indication: ATRIAL FIBRILLATION

REACTIONS (2)
  - BONE PAIN [None]
  - PATHOLOGICAL FRACTURE [None]
